FAERS Safety Report 4530259-1 (Version None)
Quarter: 2004Q4

REPORT INFORMATION
  Report Type: 
  Country: None (occurrence: None)
  Receive Date: 20041217
  Receipt Date: 20041209
  Transmission Date: 20050328
  Serious: Yes (Disabling)
  Sender: FDA-Public Use
  Company Number: US-MERCK-0412USA01200

PATIENT
  Age: 72 Year
  Sex: Female

DRUGS (11)
  1. ZOCOR [Suspect]
     Indication: BLOOD CHOLESTEROL INCREASED
     Route: 048
     Dates: start: 19990101, end: 20041101
  2. DARVOCET-N 100 [Concomitant]
     Route: 065
  3. COZAAR [Concomitant]
     Route: 065
  4. MOTRIN [Concomitant]
     Route: 065
  5. IMURAN (AZATHIOPRINE) [Concomitant]
     Route: 065
  6. PLAQUENIL [Concomitant]
     Route: 065
  7. NEURONTIN [Concomitant]
     Route: 065
  8. FLEXERIL [Concomitant]
     Route: 065
  9. TOPROL-XL [Concomitant]
     Route: 065
  10. ROBAXIN [Concomitant]
     Route: 065
  11. [THERAPY UNSPECIFIED] [Concomitant]
     Route: 065

REACTIONS (10)
  - COUGH [None]
  - DYSPNOEA [None]
  - FACE INJURY [None]
  - FALL [None]
  - HAND FRACTURE [None]
  - HEAD INJURY [None]
  - MUSCLE CRAMP [None]
  - MYOCARDIAL INFARCTION [None]
  - PAIN [None]
  - PAIN IN EXTREMITY [None]
